FAERS Safety Report 23235413 (Version 1)
Quarter: 2023Q4

REPORT INFORMATION
  Report Type: Spontaneous
  Country: US (occurrence: US)
  Receive Date: 20231128
  Receipt Date: 20231128
  Transmission Date: 20240110
  Serious: Yes (Hospitalization, Other)
  Sender: FDA-Public Use
  Company Number: US-PFIZER INC-PV202300189268

PATIENT
  Age: 21 Year
  Sex: Male

DRUGS (1)
  1. SUNITINIB MALATE [Suspect]
     Active Substance: SUNITINIB MALATE
     Indication: Hepatocellular carcinoma
     Dosage: UNK, CYCLIC
     Route: 048

REACTIONS (2)
  - Hyperammonaemic encephalopathy [Recovered/Resolved]
  - Off label use [Unknown]
